FAERS Safety Report 5757319-1 (Version None)
Quarter: 2008Q2

REPORT INFORMATION
  Report Type: 
  Country: None (occurrence: None)
  Receive Date: 20080603
  Receipt Date: 20080526
  Transmission Date: 20081010
  Serious: Yes (Hospitalization)
  Sender: FDA-Public Use
  Company Number: CL-ABBOTT-08P-034-0451902-00

PATIENT
  Sex: Female
  Weight: 61.3 kg

DRUGS (4)
  1. KALETRA [Suspect]
     Indication: HIV INFECTION
     Dosage: 400/100 MG TWICE DAILY
     Route: 048
     Dates: start: 20071201
  2. KALETRA [Suspect]
     Dates: start: 20070806, end: 20071201
  3. DIDANOSINE [Concomitant]
     Indication: HIV INFECTION
     Route: 048
     Dates: start: 20070927
  4. LAMIVUDINE [Concomitant]
     Indication: HIV INFECTION
     Route: 048
     Dates: start: 20070806

REACTIONS (5)
  - CLUBBING [None]
  - CYANOSIS [None]
  - DYSPNOEA [None]
  - OROPHARYNGITIS FUNGAL [None]
  - ORTHOPNOEA [None]
